FAERS Safety Report 15592665 (Version 1)
Quarter: 2018Q4

REPORT INFORMATION
  Report Type: Spontaneous
  Country: US (occurrence: US)
  Receive Date: 20181107
  Receipt Date: 20181107
  Transmission Date: 20190205
  Serious: Yes (Death)
  Sender: FDA-Public Use
  Company Number: None

PATIENT
  Age: 79 Year
  Sex: Female

DRUGS (1)
  1. APIXABAN [Suspect]
     Active Substance: APIXABAN

REACTIONS (5)
  - Seizure [None]
  - Dysarthria [None]
  - Muscular weakness [None]
  - Subdural haemorrhage [None]
  - Fall [None]

NARRATIVE: CASE EVENT DATE: 20180529
